FAERS Safety Report 6595248-4 (Version None)
Quarter: 2010Q1

REPORT INFORMATION
  Report Type: 
  Country: None (occurrence: None)
  Receive Date: 20100212
  Receipt Date: 20100125
  Transmission Date: 20100710
  Serious: No
  Sender: FDA-Public Use
  Company Number: SPI201000027

PATIENT
  Sex: Female

DRUGS (1)
  1. AMITIZA [Suspect]
     Indication: CONSTIPATION
     Dosage: 8 MCG, BID, ORAL
     Route: 048

REACTIONS (1)
  - DYSPNOEA [None]
